FAERS Safety Report 17222114 (Version 1)
Quarter: 2019Q4

REPORT INFORMATION
  Report Type: Spontaneous
  Country: US (occurrence: US)
  Receive Date: 20191209
  Receipt Date: 20191209
  Transmission Date: 20200122
  Serious: No
  Sender: FDA-Public Use
  Company Number: None

PATIENT
  Age: 66 Year
  Sex: Male

DRUGS (1)
  1. LEDIP/SOFOSB TAB 90-400MG TAB(2X14) [Suspect]
     Active Substance: LEDIPASVIR\SOFOSBUVIR
     Indication: HEPATITIS B
     Dosage: ?          OTHER DOSE:90/400;?
     Route: 048
     Dates: start: 20191118

REACTIONS (3)
  - Headache [None]
  - Fatigue [None]
  - Respiratory disorder [None]

NARRATIVE: CASE EVENT DATE: 20191205
